FAERS Safety Report 4399315-5 (Version None)
Quarter: 2004Q3

REPORT INFORMATION
  Report Type: 
  Country: None (occurrence: None)
  Receive Date: 20040712
  Receipt Date: 20040624
  Transmission Date: 20050211
  Serious: Yes (Death)
  Sender: FDA-Public Use
  Company Number: ENT 2004-0120

PATIENT
  Age: 84 Year
  Sex: Male

DRUGS (1)
  1. COMTAN [Suspect]
     Dosage: 600 MG (200 MG, 3 IN 1 D)
     Route: 048

REACTIONS (1)
  - PNEUMONIA [None]
